FAERS Safety Report 23029046 (Version 2)
Quarter: 2024Q1

REPORT INFORMATION
  Report Type: Report from Study
  Country: MX (occurrence: MX)
  Receive Date: 20231004
  Receipt Date: 20240322
  Transmission Date: 20240410
  Serious: Yes (Other)
  Sender: FDA-Public Use
  Company Number: MX-JNJFOC-20230867292

PATIENT
  Age: 54 Year
  Sex: Female
  Weight: 51 kg

DRUGS (2)
  1. SIMPONI [Suspect]
     Active Substance: GOLIMUMAB
     Indication: Ankylosing spondylitis
     Route: 058
     Dates: start: 20230420
  2. BETAMETHASONE DIPROPIONATE [Concomitant]
     Active Substance: BETAMETHASONE DIPROPIONATE
     Indication: Product used for unknown indication

REACTIONS (5)
  - Pneumonia [Unknown]
  - Bronchitis [Recovering/Resolving]
  - Pharyngitis [Unknown]
  - Immune system disorder [Unknown]
  - Aphonia [Unknown]

NARRATIVE: CASE EVENT DATE: 20230819
